FAERS Safety Report 6134169-8 (Version None)
Quarter: 2009Q1

REPORT INFORMATION
  Report Type: 
  Country: None (occurrence: None)
  Receive Date: 20090326
  Receipt Date: 20081110
  Transmission Date: 20090719
  Serious: No
  Sender: FDA-Public Use
  Company Number: US-AMGEN-US318247

PATIENT
  Sex: Male
  Weight: 90 kg

DRUGS (11)
  1. NPLATE [Suspect]
     Indication: IDIOPATHIC THROMBOCYTOPENIC PURPURA
     Route: 065
     Dates: start: 20081107
  2. PREVACID [Concomitant]
     Route: 065
  3. PREDNISONE [Concomitant]
     Route: 065
  4. LISINOPRIL [Concomitant]
     Route: 065
  5. DOXACILLIN [Concomitant]
     Route: 065
  6. ALLOPURINOL [Concomitant]
     Route: 065
  7. LIDODERM PATCH (ENDO PHARMACEUTICALS) [Concomitant]
     Route: 061
  8. MULTI-VITAMINS [Concomitant]
     Route: 065
  9. ASPIRIN [Concomitant]
     Route: 065
  10. VICODIN [Concomitant]
     Route: 065
  11. IMMUNOGLOBULINS [Concomitant]
     Route: 042
     Dates: end: 20081103

REACTIONS (1)
  - INCORRECT DOSE ADMINISTERED [None]
